FAERS Safety Report 14283725 (Version 5)
Quarter: 2019Q2

REPORT INFORMATION
  Report Type: Report from Study
  Country: US (occurrence: US)
  Receive Date: 20171213
  Receipt Date: 20190605
  Transmission Date: 20190711
  Serious: Yes (Death, Hospitalization)
  Sender: FDA-Public Use
  Company Number: US-UCBSA-2017049965

PATIENT
  Age: 78 Year
  Sex: Male
  Weight: 56 kg

DRUGS (11)
  1. GABAPENTIN. [Concomitant]
     Active Substance: GABAPENTIN
     Indication: SEIZURE
     Dosage: 1200 MG, 3X/DAY (TID)
     Route: 048
  2. LISINOPRIL. [Concomitant]
     Active Substance: LISINOPRIL
     Indication: HYPERTENSION
     Dosage: 5 MG DAILY DOSE
     Route: 048
  3. FAMOTIDINE. [Concomitant]
     Active Substance: FAMOTIDINE
     Indication: REFLUX GASTRITIS
     Dosage: 20 MG DAILY DOSE
     Route: 048
  4. TAMSULOSIN [Concomitant]
     Active Substance: TAMSULOSIN
     Indication: URINARY TRACT DISORDER
     Dosage: 0.4 MG DAILY
     Route: 048
  5. NEURONTIN [Concomitant]
     Active Substance: GABAPENTIN
     Indication: SEIZURE
     Dosage: 1200 MG, 3X/DAY (TID)
     Route: 048
  6. BRIVIACT [Suspect]
     Active Substance: BRIVARACETAM
     Dosage: 50 MILLIGRAM, 2X/DAY (BID)
     Route: 048
  7. LACOSAMIDE. [Suspect]
     Active Substance: LACOSAMIDE
     Indication: SEIZURE
     Dosage: 200 MG, 2X/DAY (BID)
     Route: 048
  8. BRIVIACT [Suspect]
     Active Substance: BRIVARACETAM
     Indication: PARTIAL SEIZURES
     Dosage: 100 MG, 2X/DAY (BID)
     Route: 048
     Dates: start: 201707, end: 2017
  9. BRIVIACT [Suspect]
     Active Substance: BRIVARACETAM
     Dosage: 100 MG, ONCE DAILY (QD)
     Route: 048
     Dates: start: 2017
  10. COREG [Concomitant]
     Active Substance: CARVEDILOL
     Indication: HYPERTENSION
     Dosage: 3.125 MG, 2X/DAY (BID)
     Route: 048
  11. PLAVIX [Concomitant]
     Active Substance: CLOPIDOGREL BISULFATE
     Indication: ANTICOAGULANT THERAPY
     Dosage: UNK
     Route: 048
     Dates: start: 201706, end: 201809

REACTIONS (8)
  - Seizure [Recovered/Resolved]
  - Post procedural haemorrhage [Recovering/Resolving]
  - Intraventricular haemorrhage [Fatal]
  - Myocardial infarction [Recovered/Resolved]
  - Acute respiratory failure [Fatal]
  - Intentional product misuse [Unknown]
  - Gait disturbance [Recovered/Resolved]
  - Normal pressure hydrocephalus [Fatal]

NARRATIVE: CASE EVENT DATE: 2017
